FAERS Safety Report 5225579-1 (Version None)
Quarter: 2007Q1

REPORT INFORMATION
  Report Type: 
  Country: None (occurrence: None)
  Receive Date: 20061201
  Receipt Date: 20061018
  Transmission Date: 20070707
  Serious: Yes (Hospitalization)
  Sender: FDA-Public Use
  Company Number: US200607005104

PATIENT
  Age: 92 Year
  Sex: Female
  Weight: 63 kg

DRUGS (2)
  1. CYMBALTA [Suspect]
     Indication: DEMENTIA
     Dosage: 30 MG
     Dates: start: 20060609, end: 20060709
  2. PROZAC [Concomitant]

REACTIONS (5)
  - AGITATION [None]
  - CONFUSIONAL STATE [None]
  - DEPRESSION [None]
  - GAIT DISTURBANCE [None]
  - HYPOMANIA [None]
